FAERS Safety Report 10185148 (Version 1)
Quarter: 2014Q2

REPORT INFORMATION
  Report Type: Spontaneous
  Country: AU (occurrence: AU)
  Receive Date: 20140521
  Receipt Date: 20140521
  Transmission Date: 20141212
  Serious: Yes (Death)
  Sender: FDA-Public Use
  Company Number: AU-ROCHE-1400285

PATIENT
  Sex: Female

DRUGS (1)
  1. VALIUM [Suspect]
     Indication: PRODUCT USED FOR UNKNOWN INDICATION
     Route: 065

REACTIONS (7)
  - Death [Fatal]
  - Personality change [Unknown]
  - Dysarthria [Unknown]
  - Fall [Unknown]
  - Road traffic accident [Unknown]
  - Back injury [Unknown]
  - Drug dependence [Unknown]
